FAERS Safety Report 10405087 (Version 6)
Quarter: 2015Q1

REPORT INFORMATION
  Report Type: Report from Study
  Country: PH (occurrence: PH)
  Receive Date: 20140825
  Receipt Date: 20150116
  Transmission Date: 20150720
  Serious: Yes (Death, Life-Threatening, Hospitalization)
  Sender: FDA-Public Use
  Company Number: PH-BRISTOL-MYERS SQUIBB COMPANY-16159592

PATIENT
  Age: 80 Year
  Sex: Female

DRUGS (1)
  1. APIXABAN [Suspect]
     Active Substance: APIXABAN
     Indication: CEREBROVASCULAR ACCIDENT PROPHYLAXIS
     Dosage: 10 MG, QD
     Route: 048
     Dates: start: 20101015, end: 20110712

REACTIONS (6)
  - Septic shock [Fatal]
  - Hypotension [Recovered/Resolved]
  - Peripheral arterial occlusive disease [Fatal]
  - Vomiting [Recovered/Resolved]
  - Acute myocardial infarction [Fatal]
  - Cellulitis [Fatal]

NARRATIVE: CASE EVENT DATE: 20111006
